FAERS Safety Report 6488492-8 (Version None)
Quarter: 2009Q4

REPORT INFORMATION
  Report Type: 
  Country: None (occurrence: None)
  Receive Date: 20091210
  Receipt Date: 20090831
  Transmission Date: 20100525
  Serious: No
  Sender: FDA-Public Use
  Company Number: US-AMGEN-KDL362591

PATIENT
  Sex: Female

DRUGS (1)
  1. ENBREL [Suspect]
     Indication: PSORIATIC ARTHROPATHY
     Route: 058
     Dates: start: 20040520

REACTIONS (4)
  - ARTHRALGIA [None]
  - EYELID OPERATION [None]
  - MAMMOPLASTY [None]
  - ONYCHOMYCOSIS [None]
